FAERS Safety Report 16204255 (Version 2)
Quarter: 2019Q2

REPORT INFORMATION
  Report Type: Spontaneous
  Country: US (occurrence: US)
  Receive Date: 20190416
  Receipt Date: 20190527
  Transmission Date: 20190711
  Serious: Yes (Other)
  Sender: FDA-Public Use
  Company Number: US-FDC LIMITED-2019RIS00148

PATIENT
  Age: 58 Year
  Sex: Female
  Weight: 60.14 kg

DRUGS (12)
  1. BIOTIN [Concomitant]
     Active Substance: BIOTIN
     Dosage: 5000 MCG, 1X/DAY
     Route: 048
  2. GARLIC. [Concomitant]
     Active Substance: GARLIC
     Dosage: 1000 MG, 1X/DAY
     Route: 048
  3. MAGNESIUM [Concomitant]
     Active Substance: MAGNESIUM
     Dosage: 250 MG, 1X/DAY WITH FOOD
     Route: 048
  4. COENZYME Q10 [Concomitant]
     Active Substance: UBIDECARENONE
     Dosage: 100 MG, 1X/DAY WITH A MEAL
     Route: 048
  5. OFLOXACIN. [Suspect]
     Active Substance: OFLOXACIN
     Indication: CONJUNCTIVITIS
     Dosage: 1 DROP, 4X/DAY FOR 5 DAYS
     Route: 047
     Dates: start: 20190131, end: 20190204
  6. ASPIRIN. [Concomitant]
     Active Substance: ASPIRIN
     Dosage: 81 MG, 1X/DAY
     Route: 048
  7. POTASSIUM [Concomitant]
     Active Substance: POTASSIUM
     Dosage: 1 TABLETS, 1X/DAY
     Route: 048
  8. VITAMIN C [Concomitant]
     Active Substance: ASCORBIC ACID
     Dosage: 1 TABLETS, 1X/DAY
     Route: 048
  9. PREDNISOLONE ACETATE. [Suspect]
     Active Substance: PREDNISOLONE ACETATE
     Indication: SCLERITIS
     Dosage: UNK
     Dates: start: 20190205
  10. LOSARTAN; HYDROCHLOROTHIAZIDE [Concomitant]
     Dosage: 1 TABLETS, 1X/DAY
     Route: 048
  11. BLACK COHOSH [Concomitant]
     Active Substance: BLACK COHOSH
     Dosage: UNK, AS DIRECTED
     Route: 048
  12. MULTIVITAMIN [Concomitant]
     Active Substance: VITAMINS
     Dosage: 1 TABLETS, 1X/DAY
     Route: 048

REACTIONS (21)
  - Herpes zoster [Recovered/Resolved]
  - Agitation [Recovered/Resolved]
  - Depression [Recovered/Resolved]
  - Headache [Recovered/Resolved]
  - Malaise [Recovering/Resolving]
  - Hypoacusis [Not Recovered/Not Resolved]
  - Pain [Recovered/Resolved]
  - Blood pressure increased [Not Recovered/Not Resolved]
  - Acute kidney injury [Not Recovered/Not Resolved]
  - Swelling [Recovered/Resolved]
  - Glucose tolerance impaired [Unknown]
  - Ear discomfort [Not Recovered/Not Resolved]
  - Tendonitis [Unknown]
  - Sensation of foreign body [Recovered/Resolved]
  - Chest discomfort [Recovered/Resolved]
  - Low density lipoprotein increased [Not Recovered/Not Resolved]
  - Scleritis [Unknown]
  - Blood cholesterol increased [Not Recovered/Not Resolved]
  - Pain in extremity [Not Recovered/Not Resolved]
  - Fatigue [Recovered/Resolved]
  - Exostosis [Not Recovered/Not Resolved]

NARRATIVE: CASE EVENT DATE: 2019
